FAERS Safety Report 19561843 (Version 1)
Quarter: 2021Q3

REPORT INFORMATION
  Report Type: Spontaneous
  Country: US (occurrence: US)
  Receive Date: 20210716
  Receipt Date: 20210716
  Transmission Date: 20211014
  Serious: No
  Sender: FDA-Public Use
  Company Number: None

PATIENT
  Age: 38 Year
  Sex: Female
  Weight: 56.7 kg

DRUGS (2)
  1. MEMBERS MARK LORATADINE [Suspect]
     Active Substance: LORATADINE
     Indication: SEASONAL ALLERGY
     Dosage: ?          QUANTITY:100 DF DOSAGE FORM;?
     Route: 048
     Dates: start: 202006, end: 202105
  2. MUSCLE RELAXER [Concomitant]
     Active Substance: UNSPECIFIED INGREDIENT

REACTIONS (5)
  - Abdominal distension [None]
  - Skin disorder [None]
  - Condition aggravated [None]
  - Dry eye [None]
  - Nasal dryness [None]

NARRATIVE: CASE EVENT DATE: 2021
